FAERS Safety Report 5513758-5 (Version None)
Quarter: 2007Q4

REPORT INFORMATION
  Report Type: 
  Country: None (occurrence: None)
  Receive Date: 20071113
  Receipt Date: 20071106
  Transmission Date: 20080405
  Serious: Yes (Other)
  Sender: FDA-Public Use
  Company Number: PHEH2007US14592

PATIENT

DRUGS (1)
  1. EXELON [Suspect]

REACTIONS (4)
  - CARDIOMYOPATHY [None]
  - HEPATITIS [None]
  - PANCREATITIS [None]
  - RENAL FAILURE [None]
